FAERS Safety Report 5304328-2 (Version None)
Quarter: 2007Q2

REPORT INFORMATION
  Report Type: 
  Country: None (occurrence: None)
  Receive Date: 20070423
  Receipt Date: 20070411
  Transmission Date: 20071010
  Serious: Yes (Hospitalization, Other)
  Sender: FDA-Public Use
  Company Number: PHMT2007CA01047

PATIENT
  Age: 57 Year
  Sex: Female

DRUGS (3)
  1. ZELMAC HTF+TAB [Suspect]
     Indication: IRRITABLE BOWEL SYNDROME
     Dosage: 6 PILLS/DAY
     Route: 048
     Dates: start: 20010101, end: 20050101
  2. ZELMAC HTF+TAB [Suspect]
     Dosage: 3 PILLS/DAY
     Route: 048
     Dates: start: 20050101, end: 20070301
  3. NEXIUM [Concomitant]

REACTIONS (4)
  - APHASIA [None]
  - CEREBROVASCULAR ACCIDENT [None]
  - COLECTOMY [None]
  - INTESTINAL HAEMORRHAGE [None]
